FAERS Safety Report 8144663-6 (Version None)
Quarter: 2012Q1

REPORT INFORMATION
  Report Type: 
  Country: None (occurrence: None)
  Receive Date: 20120217
  Receipt Date: 20101127
  Transmission Date: 20120608
  Serious: Yes (Other)
  Sender: FDA-Public Use
  Company Number: ES-ROCHE-1033356

PATIENT

DRUGS (3)
  1. GEMCITABINE HYDROCHLORIDE [Suspect]
     Indication: MANTLE CELL LYMPHOMA
     Dosage: UPTO 8 CYCLES
  2. MABTHERA [Suspect]
     Indication: MANTLE CELL LYMPHOMA
     Dosage: UPTO 8 CYCLES
  3. OXALIPLATIN [Suspect]
     Indication: MANTLE CELL LYMPHOMA
     Dosage: UPTO 8 CYCLES

REACTIONS (3)
  - THROMBOCYTOPENIA [None]
  - HEPATOTOXICITY [None]
  - NEUTROPENIA [None]
